FAERS Safety Report 20920342 (Version 1)
Quarter: 2022Q2

REPORT INFORMATION
  Report Type: Spontaneous
  Country: US (occurrence: None)
  Receive Date: 20220606
  Receipt Date: 20220606
  Transmission Date: 20220721
  Serious: Yes (Life-Threatening, Hospitalization)
  Sender: FDA-Public Use
  Company Number: None

PATIENT
  Age: 70 Year
  Sex: Male
  Weight: 61 kg

DRUGS (1)
  1. KETOROLAC TROMETHAMINE [Suspect]
     Active Substance: KETOROLAC TROMETHAMINE
     Indication: Pain
     Dosage: 15 MG QID IV?
     Route: 042
     Dates: start: 20220317, end: 20220319

REACTIONS (7)
  - Diarrhoea haemorrhagic [None]
  - Unresponsive to stimuli [None]
  - Hypotension [None]
  - Haemoglobin decreased [None]
  - Erosive oesophagitis [None]
  - Duodenal ulcer [None]
  - Gastric ulcer [None]

NARRATIVE: CASE EVENT DATE: 20220320
